FAERS Safety Report 5505521-6 (Version None)
Quarter: 2007Q4

REPORT INFORMATION
  Report Type: 
  Country: None (occurrence: None)
  Receive Date: 20071031
  Receipt Date: 20071022
  Transmission Date: 20080405
  Serious: Yes (Other)
  Sender: FDA-Public Use
  Company Number: L07-UKI-05604-01

PATIENT
  Age: 22 Year
  Sex: Male

DRUGS (1)
  1. CARBAMAZEPINE [Suspect]
     Dosage: 200 MG

REACTIONS (5)
  - CONJUNCTIVAL VASCULAR DISORDER [None]
  - ERYTHEMA OF EYELID [None]
  - METAPLASIA [None]
  - OCULAR DISCOMFORT [None]
  - OCULAR HYPERAEMIA [None]
